FAERS Safety Report 8105357-6 (Version None)
Quarter: 2012Q1

REPORT INFORMATION
  Report Type: 
  Country: None (occurrence: None)
  Receive Date: 20120201
  Receipt Date: 20120127
  Transmission Date: 20120608
  Serious: Yes (Other)
  Sender: FDA-Public Use
  Company Number: PHHY2012MX007914

PATIENT
  Sex: Female

DRUGS (4)
  1. ZOLEDRONOC ACID [Suspect]
     Indication: OSTEOPOROSIS
     Dosage: 5 MG/100 ML) EACH YEAR
     Route: 042
     Dates: start: 20110124
  2. VASCUFLOW [Concomitant]
     Indication: CARDIOVASCULAR DISORDER
     Dosage: 1 TABLET DAILY
     Dates: start: 20110701
  3. CALCIUM CARBONATE [Concomitant]
  4. RANTUDIL [Concomitant]
     Indication: INFLAMMATION
     Dosage: UNK UKN, UNK
     Dates: start: 20050101

REACTIONS (4)
  - INFLAMMATION [None]
  - BODY TEMPERATURE INCREASED [None]
  - OEDEMA [None]
  - STAPHYLOCOCCAL INFECTION [None]
